FAERS Safety Report 6926339-3 (Version None)
Quarter: 2010Q3

REPORT INFORMATION
  Report Type: 
  Country: None (occurrence: None)
  Receive Date: 20100816
  Receipt Date: 20100617
  Transmission Date: 20110219
  Serious: No
  Sender: FDA-Public Use
  Company Number: US-BAYER-201025846NA

PATIENT
  Sex: Female

DRUGS (1)
  1. MIRENA [Suspect]
     Indication: PRODUCT USED FOR UNKNOWN INDICATION
     Route: 015
     Dates: start: 20071001

REACTIONS (4)
  - HIRSUTISM [None]
  - MENSTRUATION DELAYED [None]
  - PREGNANCY [None]
  - WEIGHT INCREASED [None]
